FAERS Safety Report 10083532 (Version 1)
Quarter: 2014Q2

REPORT INFORMATION
  Report Type: Spontaneous
  Country: US (occurrence: US)
  Receive Date: 20140417
  Receipt Date: 20140417
  Transmission Date: 20141212
  Serious: No
  Sender: FDA-Public Use
  Company Number: US-BAYER-2014-057252

PATIENT
  Age: 88 Year
  Sex: Female
  Weight: 61.22 kg

DRUGS (11)
  1. ALEVE CAPLET [Suspect]
     Indication: ARTHRITIS
     Dosage: 1-2 DF, QD
     Route: 048
     Dates: start: 2012
  2. ATENOLOL [Concomitant]
     Dosage: UNK
  3. DORZOLAMIDE [Concomitant]
     Dosage: UNK
  4. TIMOLOL [Concomitant]
     Dosage: UNK
  5. GLIPIZIDE [Concomitant]
     Dosage: UNK
  6. XALATAN [Concomitant]
     Dosage: UNK
  7. LATANOPROST [Concomitant]
     Dosage: UNK
  8. LISINOPRIL [Concomitant]
     Dosage: UNK
  9. LOVASTATIN [Concomitant]
     Dosage: UNK
  10. AMLODIPINE [Concomitant]
     Dosage: UNK
  11. ASPIRIN [Concomitant]
     Dosage: 1 DF, PRN
     Route: 048

REACTIONS (2)
  - Oesophageal pain [Not Recovered/Not Resolved]
  - Incorrect drug administration duration [None]
